FAERS Safety Report 8143771-3 (Version None)
Quarter: 2012Q1

REPORT INFORMATION
  Report Type: 
  Country: None (occurrence: None)
  Receive Date: 20120217
  Receipt Date: 20120208
  Transmission Date: 20120608
  Serious: Yes (Death)
  Sender: FDA-Public Use
  Company Number: BE-JNJFOC-20120205600

PATIENT
  Sex: Male

DRUGS (9)
  1. FUROSEMIDE [Concomitant]
  2. CIPROFLOXACIN [Concomitant]
  3. ALLOPURINOL [Concomitant]
  4. BISOPROLOL FUMARATE [Concomitant]
  5. ZOCOR [Concomitant]
  6. CAPTOPRIL [Concomitant]
  7. GLUCOPHAGE [Concomitant]
  8. LOSFERRON [Concomitant]
  9. XARELTO [Suspect]
     Indication: CEREBROVASCULAR ACCIDENT PROPHYLAXIS
     Route: 048
     Dates: start: 20111205, end: 20120128

REACTIONS (1)
  - CEREBROVASCULAR ACCIDENT [None]
